FAERS Safety Report 11349560 (Version 1)
Quarter: 2015Q3

REPORT INFORMATION
  Report Type: Spontaneous
  Country: US (occurrence: US)
  Receive Date: 20150807
  Receipt Date: 20150807
  Transmission Date: 20151125
  Serious: No
  Sender: FDA-Public Use
  Company Number: US-ACCORD-025387

PATIENT
  Age: 65 Year
  Sex: Female

DRUGS (1)
  1. ANASTROZOLE. [Suspect]
     Active Substance: ANASTROZOLE
     Indication: PRODUCT USED FOR UNKNOWN INDICATION
     Dosage: MANUFACTURER: ACCORD AND ZYDUS

REACTIONS (13)
  - Dyspnoea [Unknown]
  - Eye pruritus [Unknown]
  - Increased appetite [Unknown]
  - Vision blurred [Unknown]
  - Alopecia [Unknown]
  - Weight increased [Unknown]
  - Insomnia [Unknown]
  - Back pain [Recovered/Resolved]
  - Paraesthesia [Unknown]
  - Dry mouth [Unknown]
  - Eructation [Unknown]
  - Cough [Unknown]
  - Fatigue [Unknown]

NARRATIVE: CASE EVENT DATE: 2013
